FAERS Safety Report 22676918 (Version 8)
Quarter: 2023Q4

REPORT INFORMATION
  Report Type: Spontaneous
  Country: US (occurrence: US)
  Receive Date: 20230706
  Receipt Date: 20231221
  Transmission Date: 20240110
  Serious: Yes (Other)
  Sender: FDA-Public Use
  Company Number: US-LUNDBECK-DKLU3063139

PATIENT
  Age: 57 Year
  Sex: Male

DRUGS (3)
  1. VYEPTI [Suspect]
     Active Substance: EPTINEZUMAB-JJMR
     Indication: Migraine
     Route: 041
     Dates: start: 20230531
  2. RIZATRIPTAN [Concomitant]
     Active Substance: RIZATRIPTAN
     Indication: Product used for unknown indication
     Route: 065
  3. NURTEC ODT [Concomitant]
     Active Substance: RIMEGEPANT SULFATE
     Indication: Product used for unknown indication
     Route: 065

REACTIONS (21)
  - Loss of consciousness [Recovered/Resolved]
  - Memory impairment [Recovered/Resolved]
  - Pruritus [Recovered/Resolved]
  - Vomiting [Recovered/Resolved]
  - Somnolence [Recovered/Resolved]
  - Feelings of worthlessness [Recovered/Resolved]
  - Insomnia [Recovered/Resolved]
  - Vertigo [Recovered/Resolved]
  - Migraine [Recovered/Resolved]
  - Nausea [Recovered/Resolved]
  - Drug intolerance [Recovered/Resolved]
  - Feeling drunk [Recovered/Resolved]
  - Fall [Recovered/Resolved]
  - Eye contusion [Recovered/Resolved]
  - Tooth fracture [Recovered/Resolved]
  - Concussion [Recovered/Resolved]
  - Joint injury [Recovered/Resolved]
  - Product dose omission issue [Unknown]
  - Drug ineffective [Recovered/Resolved]
  - Disturbance in attention [Recovered/Resolved]
  - Motion sickness [Recovered/Resolved]
